FAERS Safety Report 9117754 (Version 4)
Quarter: 2014Q1

REPORT INFORMATION
  Report Type: Spontaneous
  Country: US (occurrence: US)
  Receive Date: 20130208
  Receipt Date: 20140116
  Transmission Date: 20141002
  Serious: Yes (Death, Disabling, Other)
  Sender: FDA-Public Use
  Company Number: US-009507513-1302USA003390

PATIENT
  Sex: Male
  Weight: 72.56 kg

DRUGS (10)
  1. JANUVIA [Suspect]
     Indication: TYPE 2 DIABETES MELLITUS
     Dosage: 100 MG, QD
     Route: 048
     Dates: start: 20070327, end: 20070922
  2. JANUVIA [Suspect]
     Dosage: 100 MG, QD
     Route: 048
     Dates: start: 20111026, end: 20111116
  3. JANUVIA [Suspect]
     Dosage: 50 MG, UNK
     Route: 048
     Dates: start: 20111026
  4. JANUMET [Suspect]
     Indication: TYPE 2 DIABETES MELLITUS
     Dosage: 50/1000MG BID
     Route: 048
     Dates: start: 20070918, end: 20080814
  5. JANUMET [Suspect]
     Dosage: 50/1000MG BID
     Route: 048
     Dates: start: 20080808, end: 20100828
  6. JANUMET [Suspect]
     Dosage: 50/1000MG BID
     Route: 048
     Dates: start: 20101115, end: 20110712
  7. GLIPIZIDE [Concomitant]
     Indication: TYPE 2 DIABETES MELLITUS
  8. ACTOS [Concomitant]
     Indication: TYPE 2 DIABETES MELLITUS
  9. HUMULIN [Concomitant]
     Indication: TYPE 2 DIABETES MELLITUS
  10. METFORMIN [Concomitant]
     Indication: TYPE 2 DIABETES MELLITUS

REACTIONS (10)
  - Pancreatic carcinoma [Fatal]
  - Gastrointestinal haemorrhage [Unknown]
  - Atrial fibrillation [Unknown]
  - Hypertension [Unknown]
  - Confusional state [Unknown]
  - Hypercalcaemia [Unknown]
  - Pyrexia [Unknown]
  - Leukocytosis [Unknown]
  - Leukaemoid reaction [Unknown]
  - Weight decreased [Unknown]
